FAERS Safety Report 16354531 (Version 1)
Quarter: 2019Q2

REPORT INFORMATION
  Report Type: Spontaneous
  Country: US (occurrence: US)
  Receive Date: 20190524
  Receipt Date: 20190524
  Transmission Date: 20190711
  Serious: Yes (Hospitalization, Other)
  Sender: FDA-Public Use
  Company Number: US-ASTRAZENECA-2019SE75767

PATIENT
  Age: 57 Year
  Sex: Female
  Weight: 42.6 kg

DRUGS (5)
  1. QUETIAPINE FUMARATE. [Suspect]
     Active Substance: QUETIAPINE FUMARATE
     Indication: CRANIOCEREBRAL INJURY
     Route: 048
  2. LISINOPRIL. [Suspect]
     Active Substance: LISINOPRIL
     Indication: HYPERTENSION
     Route: 048
  3. QUETIAPINE FUMARATE. [Suspect]
     Active Substance: QUETIAPINE FUMARATE
     Indication: CRANIOCEREBRAL INJURY
     Route: 048
     Dates: start: 2014
  4. ASPIRIN. [Concomitant]
     Active Substance: ASPIRIN
     Indication: CEREBROVASCULAR ACCIDENT
     Route: 048
     Dates: start: 201807
  5. ATORVASTATIN [Concomitant]
     Active Substance: ATORVASTATIN
     Indication: BLOOD CHOLESTEROL INCREASED
     Route: 048

REACTIONS (12)
  - Hair disorder [Unknown]
  - Asthenia [Unknown]
  - Off label use [Unknown]
  - Transient ischaemic attack [Not Recovered/Not Resolved]
  - Dementia [Unknown]
  - Product use in unapproved indication [Unknown]
  - Craniocerebral injury [Unknown]
  - Weight decreased [Unknown]
  - Chest pain [Unknown]
  - Blood cholesterol increased [Unknown]
  - Amnesia [Unknown]
  - Eating disorder [Unknown]

NARRATIVE: CASE EVENT DATE: 2014
